FAERS Safety Report 4363420-X (Version None)
Quarter: 2004Q2

REPORT INFORMATION
  Report Type: 
  Country: None (occurrence: None)
  Receive Date: 20040524
  Receipt Date: 20040405
  Transmission Date: 20050107
  Serious: Yes (Life-Threatening)
  Sender: FDA-Public Use
  Company Number: JP-GLAXOSMITHKLINE-B0329459A

PATIENT
  Age: 27 Year
  Sex: Female

DRUGS (1)
  1. PAXIL [Suspect]
     Dosage: 274U PER DAY
     Route: 048
     Dates: start: 20040402, end: 20040402

REACTIONS (2)
  - DRUG TOXICITY [None]
  - NAUSEA [None]
